FAERS Safety Report 20550903 (Version 4)
Quarter: 2022Q2

REPORT INFORMATION
  Report Type: Spontaneous
  Country: US (occurrence: US)
  Receive Date: 20220304
  Receipt Date: 20220405
  Transmission Date: 20220721
  Serious: Yes (Other)
  Sender: FDA-Public Use
  Company Number: US-AUROBINDO-AUR-APL-2022-005913

PATIENT
  Age: 85 Year
  Sex: Female
  Weight: 58.967 kg

DRUGS (1)
  1. ALENDRONATE SODIUM [Suspect]
     Active Substance: ALENDRONATE SODIUM
     Indication: Osteoporosis
     Dosage: 70 MILLIGRAM, ONCE A WEEK
     Route: 048

REACTIONS (4)
  - Femur fracture [Unknown]
  - Fall [Unknown]
  - Impaired healing [Unknown]
  - Bone density decreased [Not Recovered/Not Resolved]
